FAERS Safety Report 14916384 (Version 1)
Quarter: 2018Q2

REPORT INFORMATION
  Report Type: Spontaneous
  Country: TW (occurrence: TW)
  Receive Date: 20180519
  Receipt Date: 20180519
  Transmission Date: 20180711
  Serious: Yes (Other)
  Sender: FDA-Public Use
  Company Number: TW-ROCHE-2124254

PATIENT
  Age: 53 Year
  Sex: Female

DRUGS (16)
  1. PACLITAXEL. [Concomitant]
     Active Substance: PACLITAXEL
     Route: 065
     Dates: start: 201709, end: 201712
  2. XELODA [Suspect]
     Active Substance: CAPECITABINE
     Indication: BREAST CANCER
     Route: 065
     Dates: start: 20150813, end: 201512
  3. AROMASIN [Suspect]
     Active Substance: EXEMESTANE
     Indication: BREAST CANCER
     Route: 065
     Dates: start: 201612, end: 201702
  4. AFINITOR [Suspect]
     Active Substance: EVEROLIMUS
     Indication: METASTASES TO BONE
  5. IBRANCE [Suspect]
     Active Substance: PALBOCICLIB
     Indication: BREAST CANCER
     Route: 065
     Dates: start: 20180306
  6. TAXOTERE [Concomitant]
     Active Substance: DOCETAXEL
     Route: 065
     Dates: start: 20150813, end: 201512
  7. FULVESTRANT. [Concomitant]
     Active Substance: FULVESTRANT
     Route: 065
     Dates: start: 20170316, end: 201708
  8. GEMCITABINE [Concomitant]
     Active Substance: GEMCITABINE\GEMCITABINE HYDROCHLORIDE
     Route: 065
     Dates: start: 201709, end: 201712
  9. AFINITOR [Suspect]
     Active Substance: EVEROLIMUS
     Indication: BREAST CANCER
     Route: 065
     Dates: start: 201612, end: 201702
  10. TAXOTERE [Concomitant]
     Active Substance: DOCETAXEL
     Route: 065
     Dates: start: 20160920, end: 201612
  11. XELODA [Suspect]
     Active Substance: CAPECITABINE
     Indication: METASTASES TO BONE
     Route: 065
     Dates: start: 20160920, end: 201612
  12. FEMARA [Concomitant]
     Active Substance: LETROZOLE
     Route: 065
     Dates: start: 201712, end: 201803
  13. AROMASIN [Suspect]
     Active Substance: EXEMESTANE
     Indication: METASTASES TO BONE
  14. IBRANCE [Suspect]
     Active Substance: PALBOCICLIB
     Indication: METASTASES TO BONE
  15. ARIMIDEX [Concomitant]
     Active Substance: ANASTROZOLE
     Route: 065
     Dates: start: 201512, end: 201609
  16. FEMARA [Concomitant]
     Active Substance: LETROZOLE
     Route: 065
     Dates: start: 20170316, end: 201708

REACTIONS (2)
  - Interstitial lung disease [Unknown]
  - Neutropenia [Unknown]

NARRATIVE: CASE EVENT DATE: 201612
